FAERS Safety Report 15350859 (Version 1)
Quarter: 2018Q3

REPORT INFORMATION
  Report Type: Spontaneous
  Country: US (occurrence: US)
  Receive Date: 20180905
  Receipt Date: 20180905
  Transmission Date: 20181010
  Serious: No
  Sender: FDA-Public Use
  Company Number: US-APOTEX-2018AP015133

PATIENT
  Age: 44 Year
  Sex: Female

DRUGS (3)
  1. RISPERIDONE. [Suspect]
     Active Substance: RISPERIDONE
     Indication: SCHIZOAFFECTIVE DISORDER
  2. PAROXETINE. [Suspect]
     Active Substance: PAROXETINE
     Indication: SCHIZOAFFECTIVE DISORDER
  3. LITHIUM CARBONATE. [Suspect]
     Active Substance: LITHIUM CARBONATE

REACTIONS (1)
  - Treatment noncompliance [Unknown]
